FAERS Safety Report 6138768-9 (Version None)
Quarter: 2009Q1

REPORT INFORMATION
  Report Type: 
  Country: None (occurrence: None)
  Receive Date: 20090327
  Receipt Date: 20090312
  Transmission Date: 20090719
  Serious: Yes (Life-Threatening)
  Sender: FDA-Public Use
  Company Number: 090313-0000525

PATIENT
  Age: 20 Day
  Sex: Male
  Weight: 2.5 kg

DRUGS (10)
  1. INDOCIN [Suspect]
     Indication: INTENTIONAL DRUG MISUSE
     Dosage: 25 MG;1X;IV
     Route: 042
  2. DOPAMINE HCL [Concomitant]
  3. DOBUTAMINE HCL [Concomitant]
  4. MILRINONE [Concomitant]
  5. FUROSEMIDE [Concomitant]
  6. VANCOMYCIN HCL [Concomitant]
  7. AMIKACIN [Concomitant]
  8. DIGOXIN [Concomitant]
  9. ALBUMINAR-5 [Concomitant]
  10. SODIUM REPLACEMENT [Concomitant]

REACTIONS (9)
  - BLOOD SODIUM DECREASED [None]
  - CONTINUOUS HAEMODIAFILTRATION [None]
  - DRUG PRESCRIBING ERROR [None]
  - INCORRECT DOSE ADMINISTERED [None]
  - INTENTIONAL DRUG MISUSE [None]
  - NEPHROPATHY TOXIC [None]
  - OVERDOSE [None]
  - RENAL FAILURE ACUTE [None]
  - WRONG DRUG ADMINISTERED [None]
